FAERS Safety Report 23532715 (Version 1)
Quarter: 2024Q1

REPORT INFORMATION
  Report Type: Report from Study
  Country: BR (occurrence: BR)
  Receive Date: 20240216
  Receipt Date: 20240216
  Transmission Date: 20240410
  Serious: Yes (Other)
  Sender: FDA-Public Use
  Company Number: BR-JNJFOC-20240233611

PATIENT
  Age: 60 Year
  Sex: Male
  Weight: 74 kg

DRUGS (2)
  1. INFLIXIMAB [Suspect]
     Active Substance: INFLIXIMAB
     Indication: Ankylosing spondylitis
     Dosage: LAST INFUSION WAS PERFORMED ON 04-DEC-2023
     Route: 065
     Dates: start: 202308, end: 20231204
  2. INFLIXIMAB [Suspect]
     Active Substance: INFLIXIMAB
     Indication: Product used for unknown indication
     Route: 065
     Dates: start: 202303

REACTIONS (4)
  - Uveitis [Not Recovered/Not Resolved]
  - Cataract [Unknown]
  - Ankylosing spondylitis [Unknown]
  - Off label use [Unknown]
